FAERS Safety Report 25887367 (Version 1)
Quarter: 2025Q4

REPORT INFORMATION
  Report Type: Spontaneous
  Country: US (occurrence: US)
  Receive Date: 20251006
  Receipt Date: 20251006
  Transmission Date: 20260117
  Serious: No
  Sender: BEIGENE
  Company Number: US-BEIGENE-BGN-2025-016093

PATIENT
  Age: 73 Year

DRUGS (2)
  1. BRUKINSA [Suspect]
     Active Substance: ZANUBRUTINIB
     Indication: Product used for unknown indication
     Dosage: UNK
  2. Immunoglobulin [Concomitant]

REACTIONS (4)
  - Respiratory tract congestion [Unknown]
  - Dizziness [Unknown]
  - Vertigo [Unknown]
  - Red blood cell count increased [Unknown]
